FAERS Safety Report 20512726 (Version 1)
Quarter: 2022Q1

REPORT INFORMATION
  Report Type: Spontaneous
  Country: US (occurrence: US)
  Receive Date: 20220224
  Receipt Date: 20220224
  Transmission Date: 20220423
  Serious: Yes (Other)
  Sender: FDA-Public Use
  Company Number: US-MMM-PSP-XE2SPHZ0

PATIENT
  Age: 47 Year
  Sex: Female

DRUGS (1)
  1. MIRENA [Suspect]
     Active Substance: LEVONORGESTREL
     Indication: Endometrial hyperplasia
     Dosage: 20?G/DAY
     Route: 015
     Dates: start: 20170930, end: 20220215

REACTIONS (10)
  - Arthralgia [Recovering/Resolving]
  - Headache [Recovering/Resolving]
  - Fatigue [Recovering/Resolving]
  - Urticaria [Recovered/Resolved with Sequelae]
  - Plantar fasciitis [Recovered/Resolved with Sequelae]
  - Palpitations [Recovering/Resolving]
  - Off label use of device [None]
  - Device use issue [None]
  - Hypermobility syndrome [Recovering/Resolving]
  - Drug hypersensitivity [None]

NARRATIVE: CASE EVENT DATE: 20180131
